FAERS Safety Report 5501852-4 (Version None)
Quarter: 2007Q4

REPORT INFORMATION
  Report Type: 
  Country: None (occurrence: None)
  Receive Date: 20071030
  Receipt Date: 20070410
  Transmission Date: 20080405
  Serious: No
  Sender: FDA-Public Use
  Company Number: A0644356A

PATIENT
  Age: 76 Year
  Sex: Male
  Weight: 75.5 kg

DRUGS (9)
  1. SEREVENT [Suspect]
     Indication: DRUG USE FOR UNKNOWN INDICATION
     Route: 055
     Dates: start: 20070301, end: 20070301
  2. QVAR 40 [Concomitant]
  3. LISINOPRIL [Concomitant]
  4. ASPIRIN [Concomitant]
  5. GLUCOSAMINE [Concomitant]
  6. DIGOXIN [Concomitant]
  7. WARFARIN SODIUM [Concomitant]
  8. ALBUTEROL [Concomitant]
  9. CLARITIN [Concomitant]

REACTIONS (2)
  - DYSPNOEA [None]
  - ILL-DEFINED DISORDER [None]
